FAERS Safety Report 11521002 (Version 1)
Quarter: 2015Q3

REPORT INFORMATION
  Report Type: Spontaneous
  Country: US (occurrence: None)
  Receive Date: 20150917
  Receipt Date: 20150917
  Transmission Date: 20151125
  Serious: Yes (Hospitalization)
  Sender: FDA-Public Use
  Company Number: None

PATIENT
  Age: 28 Year
  Sex: Female
  Weight: 75 kg

DRUGS (6)
  1. UNISOM SLEEPGELS MAXIMUM STRENGTH [Concomitant]
  2. ESTRACE [Concomitant]
     Active Substance: ESTRADIOL
  3. PRENATAL MULTIVITAMINS [Concomitant]
     Active Substance: VITAMINS
  4. VITAMIN B6 [Concomitant]
     Active Substance: PYRIDOXINE HYDROCHLORIDE
  5. PROGESTERONE 50MG/ML [Suspect]
     Active Substance: PROGESTERONE
     Indication: PREGNANCY
     Dosage: 10MG=0.2ML
     Route: 030
     Dates: start: 20150814, end: 20150911
  6. TYLENOL CAPLET EXTRA STRENGTH [Concomitant]

REACTIONS (1)
  - Eosinophilic pneumonia [None]

NARRATIVE: CASE EVENT DATE: 20150910
